FAERS Safety Report 8131997-4 (Version None)
Quarter: 2012Q1

REPORT INFORMATION
  Report Type: 
  Country: None (occurrence: None)
  Receive Date: 20120213
  Receipt Date: 20120203
  Transmission Date: 20120608
  Serious: Yes (Hospitalization)
  Sender: FDA-Public Use
  Company Number: US-CELGENEUS-163-21880-11122705

PATIENT
  Sex: Female
  Weight: 87.11 kg

DRUGS (23)
  1. FLUIDS [Concomitant]
     Route: 065
  2. WARFARIN SODIUM [Concomitant]
     Dosage: 5 MILLIGRAM
     Route: 048
  3. ONDANSETRON [Concomitant]
     Dosage: 8 MILLIGRAM
     Route: 065
  4. PYRIDOSTIGMINE BROMIDE [Concomitant]
     Dosage: 90 MILLIGRAM
     Route: 048
  5. POTASSIUM CHLORIDE [Concomitant]
     Dosage: 20 MILLIEQUIVALENTS
     Route: 065
  6. COREG [Concomitant]
     Dosage: 6.25 MILLIGRAM
     Route: 065
  7. ERGOCALCIFEROL [Concomitant]
     Dosage: 50000 IU (INTERNATIONAL UNIT)
     Route: 048
     Dates: start: 20111130
  8. LANTUS [Concomitant]
     Dosage: 100 UNIT / ML
     Route: 065
  9. SERTRALINE HYDROCHLORIDE [Concomitant]
     Dosage: 100 MILLIGRAM
     Route: 048
  10. WARFARIN SODIUM [Concomitant]
     Dosage: 10 MILLIGRAM
     Route: 048
  11. FLAGYL [Concomitant]
     Dosage: 500 MILLIGRAM
     Route: 065
  12. PREDNISONE TAB [Concomitant]
     Dosage: 15 MILLIGRAM
     Route: 048
  13. REVLIMID [Suspect]
     Dosage: 20 MILLIGRAM
     Route: 048
  14. HYDROMORPHONE HCL [Concomitant]
     Dosage: 2 MILLIGRAM
     Route: 048
  15. ZOFRAN ODT [Concomitant]
     Indication: NAUSEA
     Route: 048
  16. NEXIUM [Concomitant]
     Dosage: 20 MILLIGRAM
     Route: 048
  17. REVLIMID [Suspect]
     Indication: DIFFUSE LARGE B-CELL LYMPHOMA
     Dosage: 25 MILLIGRAM
     Route: 048
     Dates: start: 20111130
  18. OXYCONTIN [Concomitant]
     Dosage: 20 MILLIGRAM
     Route: 048
  19. AMBIEN [Concomitant]
     Dosage: 10 MILLIGRAM
     Route: 048
  20. LASIX [Concomitant]
     Dosage: 20 MILLIGRAM
     Route: 048
  21. PROCHLORPERAZINE [Concomitant]
     Dosage: 10 MILLIGRAM
     Route: 048
  22. SIMVASTATIN [Concomitant]
     Dosage: 20 MILLIGRAM
     Route: 048
  23. ENABLEX [Concomitant]
     Dosage: 15 MILLIGRAM
     Route: 048

REACTIONS (2)
  - CLOSTRIDIUM DIFFICILE COLITIS [None]
  - MYASTHENIA GRAVIS [None]
